FAERS Safety Report 21246572 (Version 4)
Quarter: 2022Q4

REPORT INFORMATION
  Report Type: Report from Study
  Country: US (occurrence: None)
  Receive Date: 20220824
  Receipt Date: 20221213
  Transmission Date: 20230112
  Serious: Yes (Death, Life-Threatening, Hospitalization, Other)
  Sender: FDA-Public Use
  Company Number: US-ROCHE-3165750

PATIENT
  Age: 73 Year
  Sex: Male
  Weight: 97.1 kg

DRUGS (4)
  1. ATEZOLIZUMAB [Suspect]
     Active Substance: ATEZOLIZUMAB
     Indication: Peritoneal mesothelioma malignant
     Route: 041
     Dates: start: 20220715
  2. BEVACIZUMAB [Suspect]
     Active Substance: BEVACIZUMAB
     Indication: Peritoneal mesothelioma malignant
     Route: 042
     Dates: start: 20220715
  3. CARBOPLATIN [Suspect]
     Active Substance: CARBOPLATIN
     Indication: Peritoneal mesothelioma malignant
     Route: 042
     Dates: start: 20220715
  4. PEMETREXED [Suspect]
     Active Substance: PEMETREXED
     Indication: Peritoneal mesothelioma malignant
     Route: 042
     Dates: start: 20220715

REACTIONS (5)
  - Sepsis [Fatal]
  - Thrombocytopenia [Unknown]
  - White blood cell count decreased [Unknown]
  - Renal failure [Unknown]
  - Nausea [Unknown]

NARRATIVE: CASE EVENT DATE: 20220719
